FAERS Safety Report 15672938 (Version 13)
Quarter: 2020Q2

REPORT INFORMATION
  Report Type: Report from Study
  Country: US (occurrence: US)
  Receive Date: 20181129
  Receipt Date: 20200521
  Transmission Date: 20200713
  Serious: Yes (Life-Threatening, Hospitalization, Other)
  Sender: FDA-Public Use
  Company Number: US-TESARO-US-2018TSO03697

PATIENT
  Age: 67 Year
  Sex: Female
  Weight: 108 kg

DRUGS (7)
  1. NIRAPARIB CAPSULE [Suspect]
     Active Substance: NIRAPARIB
     Dosage: 100 MG, QD
     Route: 048
  2. NIRAPARIB CAPSULE [Suspect]
     Active Substance: NIRAPARIB
     Indication: OVARIAN CANCER STAGE III
     Dosage: 300 MG, QD
     Route: 048
     Dates: start: 20180710, end: 201808
  3. NIRAPARIB CAPSULE [Suspect]
     Active Substance: NIRAPARIB
     Dosage: 100 MG, QD
  4. NIRAPARIB CAPSULE [Suspect]
     Active Substance: NIRAPARIB
     Dosage: 100 MG, QD
  5. NIRAPARIB CAPSULE [Suspect]
     Active Substance: NIRAPARIB
     Dosage: 200 MG, ONCE DAILY
     Route: 048
     Dates: start: 201808, end: 20190128
  6. NIRAPARIB CAPSULE [Suspect]
     Active Substance: NIRAPARIB
     Dosage: 100 MG, QD
     Route: 048
  7. XARELTO [Concomitant]
     Active Substance: RIVAROXABAN
     Indication: PRODUCT USED FOR UNKNOWN INDICATION
     Dosage: UNK

REACTIONS (24)
  - Product supply issue [Unknown]
  - Flushing [Not Recovered/Not Resolved]
  - Nausea [Unknown]
  - Haemoglobin decreased [Not Recovered/Not Resolved]
  - Abdominal hernia [Recovered/Resolved]
  - Hyperhidrosis [Not Recovered/Not Resolved]
  - Arthralgia [Not Recovered/Not Resolved]
  - Constipation [Not Recovered/Not Resolved]
  - Gastrointestinal haemorrhage [Recovered/Resolved]
  - Hot flush [Not Recovered/Not Resolved]
  - Malaise [Unknown]
  - Joint swelling [Unknown]
  - Initial insomnia [Not Recovered/Not Resolved]
  - Fatigue [Not Recovered/Not Resolved]
  - Product dose omission [Unknown]
  - Musculoskeletal pain [Unknown]
  - Vomiting [Not Recovered/Not Resolved]
  - Pain [Unknown]
  - Platelet count decreased [Recovered/Resolved]
  - Feeling hot [Not Recovered/Not Resolved]
  - Insomnia [Not Recovered/Not Resolved]
  - Laboratory test abnormal [Unknown]
  - Dry mouth [Not Recovered/Not Resolved]
  - Back pain [Unknown]

NARRATIVE: CASE EVENT DATE: 201808
